FAERS Safety Report 4619124-9 (Version None)
Quarter: 2005Q2

REPORT INFORMATION
  Report Type: 
  Country: None (occurrence: None)
  Receive Date: 20050321
  Receipt Date: 20040315
  Transmission Date: 20051028
  Serious: Yes (Other)
  Sender: FDA-Public Use
  Company Number: 2004-01-1007

PATIENT
  Age: 53 Year
  Sex: Male
  Weight: 79.8331 kg

DRUGS (5)
  1. PEG-INTRON [Suspect]
     Indication: HEPATITIS C
     Dosage: 120 MCG QW SUBCUTANEOUS
     Route: 058
     Dates: start: 20031206
  2. COPEGUS [Concomitant]
  3. INDOCIN [Concomitant]
  4. TYLENOL (CAPLET) [Concomitant]
  5. MOTRIN [Concomitant]

REACTIONS (1)
  - SYNCOPE [None]
